FAERS Safety Report 5845965-6 (Version None)
Quarter: 2008Q3

REPORT INFORMATION
  Report Type: 
  Country: None (occurrence: None)
  Receive Date: 20080814
  Receipt Date: 20080807
  Transmission Date: 20090109
  Serious: Yes (Other)
  Sender: FDA-Public Use
  Company Number: JP-ABBOTT-08P-087-0461305-00

PATIENT
  Sex: Female
  Weight: 50 kg

DRUGS (2)
  1. LEUPRORELIN ACETATE DEPOT [Suspect]
     Indication: BREAST CANCER
     Dates: start: 20080303, end: 20080428
  2. TAMOXIFEN CITRATE [Concomitant]
     Indication: DRUG USE FOR UNKNOWN INDICATION

REACTIONS (2)
  - DEAFNESS [None]
  - TINNITUS [None]
